FAERS Safety Report 15125999 (Version 1)
Quarter: 2018Q3

REPORT INFORMATION
  Report Type: Spontaneous
  Country: GB (occurrence: GB)
  Receive Date: 20180710
  Receipt Date: 20180710
  Transmission Date: 20181010
  Serious: Yes (Hospitalization)
  Sender: FDA-Public Use
  Company Number: GB-PFIZER INC-2018271935

PATIENT
  Age: 77 Year
  Sex: Male
  Weight: 89 kg

DRUGS (8)
  1. LUPRON DEPOT [Concomitant]
     Active Substance: LEUPROLIDE ACETATE
     Dosage: UNK
  2. TINZAPARIN SODIUM [Concomitant]
     Active Substance: TINZAPARIN SODIUM
     Dosage: 14000 IU, UNK
     Dates: end: 20180527
  3. VENLAFAXINE HYDROCHLORIDE. [Concomitant]
     Active Substance: VENLAFAXINE HYDROCHLORIDE
     Dosage: UNK
  4. DOXYCYCLINE MONOHYDRATE [Suspect]
     Active Substance: DOXYCYCLINE
     Indication: SKIN INFECTION
     Dosage: 2 X 100MG DAY 1 FOLLOWED BY 1 X 100MG FOR 3 FOLLOWING DAYS
     Route: 048
     Dates: start: 20180525, end: 20180528
  5. VITAMIN D3 [Concomitant]
     Active Substance: CHOLECALCIFEROL
     Dosage: UNK
  6. PARACETAMOL [Concomitant]
     Active Substance: ACETAMINOPHEN
     Dosage: UNK
  7. LYCOPENE [Concomitant]
     Active Substance: LYCOPENE
     Dosage: UNK
  8. CRANBERRY. [Concomitant]
     Active Substance: CRANBERRY
     Dosage: UNK

REACTIONS (2)
  - Vomiting [Unknown]
  - Syncope [Recovered/Resolved]

NARRATIVE: CASE EVENT DATE: 20180526
